FAERS Safety Report 4407736-7 (Version None)
Quarter: 2004Q3

REPORT INFORMATION
  Report Type: 
  Country: None (occurrence: None)
  Receive Date: 20040721
  Receipt Date: 20040708
  Transmission Date: 20050211
  Serious: Yes (Hospitalization)
  Sender: FDA-Public Use
  Company Number: 207726

PATIENT
  Age: 65 Year
  Sex: Female
  Weight: 59.4 kg

DRUGS (15)
  1. AVASTIN [Suspect]
     Indication: COLORECTAL CANCER METASTATIC
     Dosage: 290 MG, Q2W, INTRAVENOUS
     Route: 042
     Dates: start: 20040412
  2. OXALIPLATIN(OXALIPLATIN) [Suspect]
     Indication: COLORECTAL CANCER METASTATIC
     Dosage: 136 MG, Q2W, INTRAVENOUS
     Route: 042
     Dates: start: 20040412
  3. LEUCOVORIN CALCIUM [Suspect]
     Indication: COLORECTAL CANCER METASTATIC
     Dosage: 320 MG, Q2W, INTRAVENOUS
     Route: 042
     Dates: start: 20040412
  4. FLUOROURACIL [Suspect]
     Indication: COLORECTAL CANCER METASTATIC
     Dosage: SEE IMAGE
     Route: 040
     Dates: start: 20040412
  5. LIPITOR [Concomitant]
  6. PREMARIN [Concomitant]
  7. XANAX [Concomitant]
  8. FIORICET (ACETAMINOPHEN, BUTALBITAL, CAFFEINE) [Concomitant]
  9. K-DUR 10 [Concomitant]
  10. PHENERGAN [Concomitant]
  11. ATIVAN [Concomitant]
  12. ALOXI (PALONOSETRON) [Concomitant]
  13. DECADRON [Concomitant]
  14. NEUPOGEN (FILGRASTIM) [Concomitant]
  15. PREDNISONE (PREDNISONE) [Concomitant]

REACTIONS (6)
  - COLON CANCER RECURRENT [None]
  - DEHYDRATION [None]
  - ENTERITIS [None]
  - METASTASES TO LYMPH NODES [None]
  - PYREXIA [None]
  - WHITE BLOOD CELL COUNT DECREASED [None]
